FAERS Safety Report 11190133 (Version 1)
Quarter: 2015Q2

REPORT INFORMATION
  Report Type: Spontaneous
  Country: US (occurrence: None)
  Receive Date: 20150601
  Receipt Date: 20150601
  Transmission Date: 20150821
  Serious: Yes (Hospitalization, Other)
  Sender: FDA-Public Use
  Company Number: 2013-002378

PATIENT
  Age: 72 Year
  Sex: Female
  Weight: 49 kg

DRUGS (9)
  1. ACTONEL [Suspect]
     Active Substance: RISEDRONATE SODIUM
     Indication: OSTEOPOROSIS PROPHYLAXIS
     Route: 048
     Dates: start: 200808, end: 201107
  2. ACTONEL [Suspect]
     Active Substance: RISEDRONATE SODIUM
     Indication: OSTEOPOROSIS
     Route: 048
     Dates: start: 2004, end: 200808
  3. NASONEX [Concomitant]
     Active Substance: MOMETASONE FUROATE
  4. COLACE [Concomitant]
     Active Substance: DOCUSATE SODIUM
  5. ACTONEL [Suspect]
     Active Substance: RISEDRONATE SODIUM
     Indication: OSTEOPOROSIS
     Route: 048
     Dates: start: 200808, end: 201107
  6. VITAMIN NOS [Concomitant]
  7. PRILOSEC (OMEPRAZOLE) [Concomitant]
     Active Substance: OMEPRAZOLE MAGNESIUM
  8. ACTONEL [Suspect]
     Active Substance: RISEDRONATE SODIUM
     Indication: OSTEOPOROSIS PROPHYLAXIS
     Route: 048
     Dates: start: 2004, end: 200808
  9. CALCIUM [Concomitant]
     Active Substance: CALCIUM

REACTIONS (6)
  - Pathological fracture [None]
  - Low turnover osteopathy [None]
  - Stress fracture [None]
  - Femur fracture [None]
  - Bone disorder [None]
  - Fall [None]

NARRATIVE: CASE EVENT DATE: 20110708
